FAERS Safety Report 13181246 (Version 1)
Quarter: 2017Q1

REPORT INFORMATION
  Report Type: Spontaneous
  Country: US (occurrence: US)
  Receive Date: 20170202
  Receipt Date: 20170202
  Transmission Date: 20170428
  Serious: No
  Sender: FDA-Public Use
  Company Number: US-SMITH AND NEPHEW, INC-2016SMT01061

PATIENT
  Age: 70 Year
  Sex: Male
  Weight: 102.4 kg

DRUGS (12)
  1. GABAPENTIN. [Concomitant]
     Active Substance: GABAPENTIN
     Dosage: 600 MG, 5X/DAY
  2. VITAMIN D3 [Concomitant]
     Active Substance: CHOLECALCIFEROL
     Dosage: 5000 IU, 1X/DAY
  3. LISINOPRIL. [Concomitant]
     Active Substance: LISINOPRIL
     Dosage: 20 MG, 1X/DAY
  4. HYDROCODONE-APAP [Concomitant]
     Active Substance: ACETAMINOPHEN\HYDROCODONE
     Dosage: 0.5 TABLETS, 3X/DAY
  5. VITAMIN B12 [Concomitant]
     Active Substance: CYANOCOBALAMIN
     Dosage: 2500 ?G, 1X/DAY
  6. METFORMIN [Concomitant]
     Active Substance: METFORMIN HYDROCHLORIDE
     Dosage: 750 MG, 1X/DAY
  7. ASPIRIN. [Concomitant]
     Active Substance: ASPIRIN
     Dosage: 81 MG, 1X/DAY
  8. VITAMIN C [Concomitant]
     Active Substance: ASCORBIC ACID
     Dosage: 2000 MG, 1X/DAY
  9. SAW PALMETTO [Concomitant]
     Active Substance: SAW PALMETTO
     Dosage: 450 MG, 2X/DAY
  10. REGRANEX [Suspect]
     Active Substance: BECAPLERMIN
     Indication: ULCER
     Dosage: UNK, 1X/DAY
     Route: 061
     Dates: start: 201610, end: 201611
  11. PRILOSEC [Concomitant]
     Active Substance: OMEPRAZOLE MAGNESIUM
     Dosage: 20 MG, 2X/DAY
  12. MIRAPEX [Concomitant]
     Active Substance: PRAMIPEXOLE DIHYDROCHLORIDE
     Dosage: 1 MG, 3X/DAY

REACTIONS (4)
  - Wound secretion [Recovered/Resolved]
  - Wound complication [Not Recovered/Not Resolved]
  - Off label use [Recovered/Resolved]
  - Drug ineffective for unapproved indication [Unknown]

NARRATIVE: CASE EVENT DATE: 2016
